FAERS Safety Report 24674561 (Version 1)
Quarter: 2024Q4

REPORT INFORMATION
  Report Type: Spontaneous
  Country: FR (occurrence: FR)
  Receive Date: 20241128
  Receipt Date: 20241128
  Transmission Date: 20250115
  Serious: Yes (Congenital Anomaly, Other)
  Sender: ORGANON
  Company Number: FR-TEVA-2019-FR-1023228

PATIENT

DRUGS (4)
  1. ALENDRONATE SODIUM [Suspect]
     Active Substance: ALENDRONATE SODIUM
     Indication: Osteoporosis
     Dosage: UNK
     Route: 064
  2. MYCOPHENOLATE MOFETIL [Suspect]
     Active Substance: MYCOPHENOLATE MOFETIL
     Dosage: UNK
     Route: 064
  3. AZATHIOPRINE [Concomitant]
     Active Substance: AZATHIOPRINE
     Dosage: UNK
     Route: 064
  4. AMOROLFINE [Concomitant]
     Active Substance: AMOROLFINE
     Dosage: UNK
     Route: 064

REACTIONS (10)
  - Craniofacial deformity [Unknown]
  - Oesophageal atresia [Unknown]
  - Congenital hand malformation [Unknown]
  - Pulmonary malformation [Unknown]
  - Congenital aortic anomaly [Unknown]
  - Congenital cardiovascular anomaly [Unknown]
  - Microphthalmos [Unknown]
  - Coloboma [Unknown]
  - Epiphyses premature fusion [Unknown]
  - Foetal exposure during pregnancy [Unknown]
